FAERS Safety Report 16885266 (Version 2)
Quarter: 2019Q4

REPORT INFORMATION
  Report Type: Report from Study
  Country: US (occurrence: US)
  Receive Date: 20191004
  Receipt Date: 20191008
  Transmission Date: 20200122
  Serious: Yes (Death)
  Sender: FDA-Public Use
  Company Number: US-PFIZER INC-2019422879

PATIENT

DRUGS (2)
  1. SIROLIMUS. [Suspect]
     Active Substance: SIROLIMUS
     Indication: NEUROFIBROSARCOMA
     Dosage: 2 MG, DAILY, (28 DAYS CYCLE)
     Route: 048
  2. PEXIDARTINIB [Suspect]
     Active Substance: PEXIDARTINIB
     Indication: NEUROFIBROSARCOMA
     Dosage: 1000 MG, CYCLIC (28 DAYS CYCLE)

REACTIONS (1)
  - Dehydration [Fatal]
